FAERS Safety Report 24380861 (Version 1)
Quarter: 2024Q3

REPORT INFORMATION
  Report Type: Spontaneous
  Country: GB (occurrence: GB)
  Receive Date: 20240930
  Receipt Date: 20240930
  Transmission Date: 20241016
  Serious: Yes (Other)
  Sender: ELI LILLY AND CO
  Company Number: GB-MHRA-TPP30575127C7802683YC1726561379418

PATIENT
  Age: 65 Year
  Sex: Female
  Weight: 77 kg

DRUGS (5)
  1. MOUNJARO [Suspect]
     Active Substance: TIRZEPATIDE
     Indication: Product used for unknown indication
     Dosage: 2.5 MG, WEEKLY (1/W) (1 DF)
     Route: 058
     Dates: start: 20240808
  2. ATORVASTATIN [Concomitant]
     Active Substance: ATORVASTATIN
     Indication: Blood cholesterol decreased
     Dosage: 1 DOSAGE FORM, DAILY
     Dates: start: 20240408
  3. METFORMIN [Concomitant]
     Active Substance: METFORMIN HYDROCHLORIDE
     Indication: Ill-defined disorder
     Dosage: 2 DOSAGE FORM, DAILY
     Dates: start: 20240408
  4. AMLODIPINE [Concomitant]
     Active Substance: AMLODIPINE BESYLATE
     Indication: Blood pressure measurement
     Dosage: 1 DOSAGE FORM, DAILY
     Dates: start: 20240529
  5. OSTEOCAPS [Concomitant]
     Indication: Ill-defined disorder
     Dosage: 1 DOSAGE FORM, MONTHLY (1/M)
     Dates: start: 20240529

REACTIONS (2)
  - Nasal congestion [Recovered/Resolved]
  - Lip swelling [Recovered/Resolved]
